FAERS Safety Report 23826279 (Version 1)
Quarter: 2024Q2

REPORT INFORMATION
  Report Type: Spontaneous
  Country: US (occurrence: US)
  Receive Date: 20240507
  Receipt Date: 20240507
  Transmission Date: 20240716
  Serious: Yes (Other)
  Sender: FDA-Public Use
  Company Number: US-PFIZER INC-PV202400058138

PATIENT
  Age: 50 Year
  Sex: Female

DRUGS (12)
  1. METHOTREXATE SODIUM [Suspect]
     Active Substance: METHOTREXATE SODIUM
  2. CORTICOTROPIN [Suspect]
     Active Substance: CORTICOTROPIN
     Indication: Systemic lupus erythematosus
     Dosage: 80 UNITS 2 TIMES A WEEK
     Route: 058
  3. ALAVERT ALLERGY [Concomitant]
     Active Substance: LORATADINE
  4. B1 [Concomitant]
     Indication: Nutritional supplementation
  5. BIOTIN [Concomitant]
     Active Substance: BIOTIN
     Indication: Nutritional supplementation
  6. FISH OIL [Concomitant]
     Active Substance: FISH OIL
     Indication: Nutritional supplementation
  7. FOLIC ACID [Concomitant]
     Active Substance: FOLIC ACID
  8. ASPIRIN [Concomitant]
     Active Substance: ASPIRIN
  9. IRON [Concomitant]
     Active Substance: IRON
     Indication: Nutritional supplementation
  10. METOPROLOL TARTRATE [Concomitant]
     Active Substance: METOPROLOL TARTRATE
  11. PLAQUENIL [Concomitant]
     Active Substance: HYDROXYCHLOROQUINE SULFATE
  12. VITAMIN C [Concomitant]
     Active Substance: ASCORBIC ACID
     Indication: Nutritional supplementation

REACTIONS (5)
  - Fall [Unknown]
  - Blood pressure fluctuation [Recovered/Resolved]
  - Dizziness [Unknown]
  - Insomnia [Unknown]
  - Nausea [Recovered/Resolved]
